FAERS Safety Report 6834280-X (Version None)
Quarter: 2010Q3

REPORT INFORMATION
  Report Type: 
  Country: None (occurrence: None)
  Receive Date: 20100712
  Receipt Date: 20070423
  Transmission Date: 20110219
  Serious: No
  Sender: FDA-Public Use
  Company Number: US-PFIZER INC-2007033362

PATIENT
  Age: 63 Year
  Sex: Female
  Weight: 77.11 kg

DRUGS (8)
  1. CHANTIX [Suspect]
     Indication: SMOKING CESSATION THERAPY
     Dates: start: 20070101, end: 20070401
  2. TYLENOL (CAPLET) [Concomitant]
  3. CELEBREX [Concomitant]
  4. EFFEXOR [Concomitant]
  5. PLAVIX [Concomitant]
  6. MONTELUKAST SODIUM [Concomitant]
  7. TOPROL-XL [Concomitant]
  8. WELLBUTRIN [Concomitant]

REACTIONS (4)
  - DYSKINESIA [None]
  - SEDATION [None]
  - SOMNOLENCE [None]
  - TREMOR [None]
